FAERS Safety Report 20770689 (Version 11)
Quarter: 2025Q1

REPORT INFORMATION
  Report Type: Report from Study
  Country: DE (occurrence: DE)
  Receive Date: 20220429
  Receipt Date: 20250117
  Transmission Date: 20250409
  Serious: Yes (Hospitalization)
  Sender: TAKEDA
  Company Number: DE-TAKEDA-2022TUS009420

PATIENT
  Age: 81 Year
  Sex: Female

DRUGS (49)
  1. TEDUGLUTIDE [Suspect]
     Active Substance: TEDUGLUTIDE
     Indication: Short-bowel syndrome
     Dosage: 4 MILLIGRAM, QD
     Dates: start: 20141022, end: 201802
  2. TEDUGLUTIDE [Suspect]
     Active Substance: TEDUGLUTIDE
     Dosage: 2 MILLIGRAM, QD
     Dates: start: 201802, end: 20180523
  3. TEDUGLUTIDE [Suspect]
     Active Substance: TEDUGLUTIDE
     Dosage: 999 MILLIGRAM, QD
     Dates: start: 20180523
  4. TEDUGLUTIDE [Suspect]
     Active Substance: TEDUGLUTIDE
  5. DEVIT [Concomitant]
     Indication: Vitamin D deficiency
     Dosage: 0.06 MILLIGRAM, QD
     Dates: start: 202001
  6. MAGNESIUM [Concomitant]
     Active Substance: MAGNESIUM
     Indication: Magnesium deficiency
     Dosage: 150 MILLIGRAM, TID
     Dates: start: 20200115
  7. MAGNESIUM [Concomitant]
     Active Substance: MAGNESIUM
  8. FOSFOMYCIN [Concomitant]
     Active Substance: FOSFOMYCIN
     Indication: Urinary tract infection
  9. CHOLECALCIFEROL [Concomitant]
     Active Substance: CHOLECALCIFEROL
     Indication: Vitamin supplementation
     Dosage: 0.03 MILLIGRAM, TID
     Dates: start: 20190309
  10. Selenase [Concomitant]
     Dosage: 0.1 MILLIGRAM, QD
  11. CALCIMAGON D3 UNO [Concomitant]
     Indication: Mineral supplementation
     Dosage: 999 MILLIGRAM, BID
     Dates: start: 2004, end: 2017
  12. CALCIMAGON D3 UNO [Concomitant]
     Indication: Vitamin supplementation
     Dosage: 999 MILLIGRAM, QD
     Dates: start: 2017, end: 201710
  13. CALCIMAGON D3 UNO [Concomitant]
     Dosage: 999 MILLIGRAM, BID
     Dates: start: 201710, end: 2019
  14. PANTOPRAZOLE SODIUM [Concomitant]
     Active Substance: PANTOPRAZOLE SODIUM
     Indication: Hyperchlorhydria
     Dosage: 40 MILLIGRAM, BID
     Dates: start: 2004, end: 201803
  15. PANTOPRAZOLE SODIUM [Concomitant]
     Active Substance: PANTOPRAZOLE SODIUM
     Dosage: 40 MILLIGRAM, BID
     Dates: start: 201803
  16. POTASSIUM CITRATE [Concomitant]
     Active Substance: POTASSIUM CITRATE
     Dosage: 780 MILLIGRAM, QD
     Dates: end: 2020
  17. TORSEMIDE [Concomitant]
     Active Substance: TORSEMIDE
     Indication: Hypertension
     Dosage: 10 MILLIGRAM, BID
     Dates: start: 201205
  18. AMLODIPINE [Concomitant]
     Active Substance: AMLODIPINE BESYLATE
     Indication: Hypertension
  19. LOPERAMIDE [Concomitant]
     Active Substance: LOPERAMIDE
     Indication: Diarrhoea
  20. LOPERAMIDE [Concomitant]
     Active Substance: LOPERAMIDE
  21. LOPERAMIDE [Concomitant]
     Active Substance: LOPERAMIDE
  22. Nac [Concomitant]
     Indication: Chronic obstructive pulmonary disease
     Dosage: 600 MILLIGRAM, QD
     Dates: start: 201709, end: 201810
  23. ELIQUIS [Concomitant]
     Active Substance: APIXABAN
     Indication: Anticoagulant therapy
     Dosage: 5 MILLIGRAM, BID
     Dates: start: 201708
  24. BISOPROLOL [Concomitant]
     Active Substance: BISOPROLOL
     Indication: Hypertension
     Dosage: 2.5 MILLIGRAM, QD
     Dates: start: 201710
  25. SIMVASTATIN [Concomitant]
     Active Substance: SIMVASTATIN
     Indication: Hypercholesterolaemia
     Dosage: 20 MILLIGRAM, QD
     Dates: start: 201710
  26. PREDNISOLONE [Concomitant]
     Active Substance: PREDNISOLONE
     Indication: Chronic obstructive pulmonary disease
     Dosage: 10 MILLIGRAM, QOD
     Dates: start: 2017, end: 2017
  27. FUROSEMIDE [Concomitant]
     Active Substance: FUROSEMIDE
     Indication: Cardiac failure acute
  28. POTASSIUM [Concomitant]
     Active Substance: POTASSIUM
     Indication: Hypokalaemia
  29. SULFAMETHOXAZOLE\TRIMETHOPRIM [Concomitant]
     Active Substance: SULFAMETHOXAZOLE\TRIMETHOPRIM
     Indication: Urinary tract infection
  30. FOLIC ACID [Concomitant]
     Active Substance: FOLIC ACID
     Indication: Anaemia macrocytic
     Dosage: 5 MILLIGRAM, QD
     Dates: start: 201801
  31. APIXABAN [Concomitant]
     Active Substance: APIXABAN
     Indication: Atrial fibrillation
  32. APIXABAN [Concomitant]
     Active Substance: APIXABAN
     Dosage: 25 MILLIGRAM, QD
     Dates: start: 201803
  33. CHOLECALCIFEROL [Concomitant]
     Active Substance: CHOLECALCIFEROL
     Indication: Vitamin D deficiency
     Dosage: 20 MILLIGRAM, QD
     Dates: start: 201803
  34. CALCIUM CARBONATE [Concomitant]
     Active Substance: CALCIUM CARBONATE
     Indication: Mineral supplementation
     Dosage: 250 MILLIGRAM, TID
     Dates: end: 2020
  35. NALOXONE HYDROCHLORIDE\TILIDINE HYDROCHLORIDE [Concomitant]
     Active Substance: NALOXONE HYDROCHLORIDE\TILIDINE HYDROCHLORIDE
     Indication: Thoracic vertebral fracture
     Dosage: 100 MILLIGRAM, BID
     Dates: start: 201712, end: 2018
  36. CEFUROXIME [Concomitant]
     Active Substance: CEFUROXIME
     Indication: Erysipelas
  37. CEFUROXIME [Concomitant]
     Active Substance: CEFUROXIME
     Dosage: 500 MILLIGRAM, BID
     Dates: start: 20171130, end: 201712
  38. OLODATEROL HYDROCHLORIDE\TIOTROPIUM BROMIDE MONOHYDRATE [Concomitant]
     Active Substance: OLODATEROL HYDROCHLORIDE\TIOTROPIUM BROMIDE MONOHYDRATE
     Indication: Chronic obstructive pulmonary disease
     Dosage: 2 DOSAGE FORM, BID
     Dates: start: 201709, end: 202205
  39. RAMIPRIL [Concomitant]
     Active Substance: RAMIPRIL
     Indication: Hypertension
  40. AMLODIPINE BESYLATE\OLMESARTAN MEDOXOMIL [Concomitant]
     Active Substance: AMLODIPINE BESYLATE\OLMESARTAN MEDOXOMIL
     Indication: Hypertension
  41. TRIMIPRAMINE [Concomitant]
     Active Substance: TRIMIPRAMINE
     Indication: Depression
  42. ESCITALOPRAM [Concomitant]
     Active Substance: ESCITALOPRAM OXALATE
     Indication: Depression
  43. LEVOTHYROXINE SODIUM [Concomitant]
     Active Substance: LEVOTHYROXINE SODIUM
     Indication: Hypothyroidism
  44. FERROUS GLUCONATE [Concomitant]
     Active Substance: FERROUS GLUCONATE
     Indication: Iron deficiency
  45. METAMIZOL [Concomitant]
     Active Substance: METAMIZOLE SODIUM
     Indication: Osteoporosis
  46. ASPIRIN [Concomitant]
     Active Substance: ASPIRIN
     Indication: Factor V Leiden mutation
  47. CALCIUM CARBONATE\CHOLECALCIFEROL [Concomitant]
     Active Substance: CALCIUM CARBONATE\CHOLECALCIFEROL
     Indication: Mineral supplementation
     Dosage: 0.03 MILLIGRAM, TID
     Dates: start: 20190309
  48. FALITHROM [Concomitant]
     Active Substance: PHENPROCOUMON
     Indication: Atrial fibrillation
  49. FALITHROM [Concomitant]
     Active Substance: PHENPROCOUMON
     Indication: Factor V Leiden mutation

REACTIONS (2)
  - Chronic obstructive pulmonary disease [Not Recovered/Not Resolved]
  - Dyspnoea [Not Recovered/Not Resolved]

NARRATIVE: CASE EVENT DATE: 20170901
